FAERS Safety Report 24155595 (Version 1)
Quarter: 2024Q3

REPORT INFORMATION
  Report Type: Spontaneous
  Country: AT (occurrence: AT)
  Receive Date: 20240731
  Receipt Date: 20240731
  Transmission Date: 20241017
  Serious: Yes (Other)
  Sender: VIIV
  Company Number: AT-ViiV Healthcare Limited-AT2024EME093045

PATIENT

DRUGS (1)
  1. DOVATO [Suspect]
     Active Substance: DOLUTEGRAVIR SODIUM\LAMIVUDINE
     Indication: HIV infection
     Dosage: UNK

REACTIONS (4)
  - Syphilis [Unknown]
  - Fatigue [Unknown]
  - Hyperhidrosis [Unknown]
  - Lymphadenopathy [Unknown]
